FAERS Safety Report 9756069 (Version 2)
Quarter: 2014Q2

REPORT INFORMATION
  Report Type: Spontaneous
  Country: FR (occurrence: FR)
  Receive Date: 20131213
  Receipt Date: 20140424
  Transmission Date: 20141212
  Serious: Yes (Hospitalization)
  Sender: FDA-Public Use
  Company Number: FR-GLAXOSMITHKLINE-B0951118A

PATIENT
  Age: 43 Year
  Sex: Male

DRUGS (1)
  1. REQUIP LP [Suspect]
     Indication: PARKINSON^S DISEASE
     Route: 048

REACTIONS (6)
  - Hypotension [Recovered/Resolved]
  - Malaise [Recovered/Resolved]
  - Hyperhidrosis [Unknown]
  - Tremor [Unknown]
  - Presyncope [Recovered/Resolved]
  - Incorrect dose administered [Unknown]
